FAERS Safety Report 4635786-4 (Version None)
Quarter: 2005Q2

REPORT INFORMATION
  Report Type: 
  Country: None (occurrence: None)
  Receive Date: 20050413
  Receipt Date: 20050329
  Transmission Date: 20051028
  Serious: Yes (Hospitalization)
  Sender: FDA-Public Use
  Company Number: FR-YAMANOUCHI-YEHQ20040444

PATIENT
  Age: 18 Year
  Sex: Female

DRUGS (2)
  1. VESICARE [Suspect]
  2. VESICARE [Suspect]

REACTIONS (1)
  - LOSS OF CONSCIOUSNESS [None]
